FAERS Safety Report 8615921-3 (Version None)
Quarter: 2012Q3

REPORT INFORMATION
  Report Type: 
  Country: None (occurrence: None)
  Receive Date: 20120823
  Receipt Date: 20120814
  Transmission Date: 20120928
  Serious: Yes (Hospitalization)
  Sender: FDA-Public Use
  Company Number: CA-GLAXOSMITHKLINE-A0989733A

PATIENT
  Sex: Female

DRUGS (3)
  1. MORPHINE SULFATE [Concomitant]
  2. FERROUS GLUCONATE [Concomitant]
  3. VOTRIENT [Suspect]
     Indication: ANGIOSARCOMA
     Dosage: 800MG PER DAY
     Route: 048
     Dates: start: 20120317, end: 20120717

REACTIONS (2)
  - SURGERY [None]
  - DRUG INEFFECTIVE [None]
